FAERS Safety Report 13517086 (Version 1)
Quarter: 2017Q2

REPORT INFORMATION
  Report Type: Spontaneous
  Country: US (occurrence: US)
  Receive Date: 20170504
  Receipt Date: 20170504
  Transmission Date: 20170830
  Serious: Yes (Other)
  Sender: FDA-Public Use
  Company Number: None

PATIENT
  Age: 65 Year
  Sex: Female

DRUGS (9)
  1. DEXAMETHASONE. [Concomitant]
     Active Substance: DEXAMETHASONE
  2. DRONABINOL. [Concomitant]
     Active Substance: DRONABINOL
  3. LENALIDOMIDE [Concomitant]
     Active Substance: LENALIDOMIDE
  4. VELCADE [Concomitant]
     Active Substance: BORTEZOMIB
  5. ASPIRIN. [Concomitant]
     Active Substance: ASPIRIN
  6. REVLIMID [Suspect]
     Active Substance: LENALIDOMIDE
     Indication: PLASMA CELL MYELOMA
     Dosage: 25MG DAILY FOR 14D/21D ORAL
     Route: 048
     Dates: start: 20170109, end: 20170410
  7. ACYCLOVIR. [Concomitant]
     Active Substance: ACYCLOVIR
  8. GABAPENTIN. [Concomitant]
     Active Substance: GABAPENTIN
  9. ALPRAZOL [Concomitant]

REACTIONS (2)
  - Joint swelling [None]
  - Oedema peripheral [None]

NARRATIVE: CASE EVENT DATE: 20170329
